FAERS Safety Report 16033324 (Version 1)
Quarter: 2019Q1

REPORT INFORMATION
  Report Type: Spontaneous
  Country: US (occurrence: US)
  Receive Date: 20190305
  Receipt Date: 20190305
  Transmission Date: 20190418
  Serious: Yes (Other)
  Sender: FDA-Public Use
  Company Number: US-PFIZER INC-2018120478

PATIENT
  Age: 45 Year
  Sex: Male

DRUGS (1)
  1. REVATIO [Suspect]
     Active Substance: SILDENAFIL CITRATE
     Indication: PULMONARY ARTERIAL HYPERTENSION
     Dosage: 40 MG, 3X/DAY (2 TABLETS BY MOUTH THREE TIMES DAILY)
     Route: 048

REACTIONS (4)
  - Loss of personal independence in daily activities [Unknown]
  - Right-to-left cardiac shunt [Unknown]
  - Malaise [Unknown]
  - Product use issue [Unknown]
